FAERS Safety Report 16623832 (Version 1)
Quarter: 2019Q3

REPORT INFORMATION
  Report Type: Report from Study
  Country: IT (occurrence: IT)
  Receive Date: 20190724
  Receipt Date: 20190724
  Transmission Date: 20191004
  Serious: Yes (Other)
  Sender: FDA-Public Use
  Company Number: IT-TEVA-2019-IT-1081912

PATIENT
  Age: 49 Year
  Sex: Female

DRUGS (1)
  1. AMOXICILLINA RATIOPHARM [Suspect]
     Active Substance: AMOXICILLIN
     Indication: TOOTH ABSCESS
     Route: 048
     Dates: start: 20190706, end: 20190706

REACTIONS (4)
  - Skin oedema [Recovering/Resolving]
  - Hypersensitivity [Recovering/Resolving]
  - Laryngeal oedema [Recovering/Resolving]
  - Tongue oedema [Recovering/Resolving]

NARRATIVE: CASE EVENT DATE: 20190706
